FAERS Safety Report 18595112 (Version 2)
Quarter: 2020Q4

REPORT INFORMATION
  Report Type: Report from Study
  Country: US (occurrence: US)
  Receive Date: 20201209
  Receipt Date: 20201222
  Transmission Date: 20210114
  Serious: Yes (Other)
  Sender: FDA-Public Use
  Company Number: US-PFIZER INC-2020480429

PATIENT
  Age: 2 Year
  Sex: Female
  Weight: 13.2 kg

DRUGS (4)
  1. REMODULIN [Suspect]
     Active Substance: TREPROSTINIL
     Indication: PULMONARY ARTERIAL HYPERTENSION
     Dosage: 0.098 UG/KG
     Route: 058
     Dates: start: 20190415
  2. REVATIO [Suspect]
     Active Substance: SILDENAFIL CITRATE
     Dosage: UNK
  3. REMODULIN [Suspect]
     Active Substance: TREPROSTINIL
     Indication: PULMONARY ARTERIAL HYPERTENSION
     Dosage: CONCENTRATION 2.5 MG/ML, 0.0927 UG/KG
     Route: 058
     Dates: start: 20190415
  4. TRACLEER [Suspect]
     Active Substance: BOSENTAN
     Indication: PULMONARY ARTERIAL HYPERTENSION
     Dosage: 31.35 MG, 2X/DAY
     Route: 048

REACTIONS (4)
  - Infusion site irritation [Unknown]
  - Blood pressure abnormal [Unknown]
  - Infusion site erythema [Unknown]
  - Infusion site reaction [Unknown]
